APPROVED DRUG PRODUCT: RUFINAMIDE
Active Ingredient: RUFINAMIDE
Strength: 40MG/ML
Dosage Form/Route: SUSPENSION;ORAL
Application: A213457 | Product #001 | TE Code: AB
Applicant: LUPIN LTD
Approved: Dec 18, 2020 | RLD: No | RS: No | Type: RX